FAERS Safety Report 22139718 (Version 1)
Quarter: 2023Q1

REPORT INFORMATION
  Report Type: Spontaneous
  Country: US (occurrence: US)
  Receive Date: 20230327
  Receipt Date: 20230327
  Transmission Date: 20230417
  Serious: No
  Sender: FDA-Public Use
  Company Number: US-ELI_LILLY_AND_COMPANY-US202303009427

PATIENT
  Age: 63 Year
  Sex: Female

DRUGS (1)
  1. EMGALITY [Suspect]
     Active Substance: GALCANEZUMAB-GNLM
     Indication: Migraine
     Dosage: 120 MG, UNKNOWN
     Route: 058

REACTIONS (11)
  - Hypoaesthesia eye [Unknown]
  - Intranasal hypoaesthesia [Unknown]
  - Hypoaesthesia [Unknown]
  - Influenza [Unknown]
  - Gait disturbance [Unknown]
  - Sinusitis [Unknown]
  - Nasopharyngitis [Unknown]
  - Injection site mass [Unknown]
  - Injection site urticaria [Unknown]
  - Injection site pain [Unknown]
  - Product storage error [Unknown]

NARRATIVE: CASE EVENT DATE: 20230308
